FAERS Safety Report 24749107 (Version 1)
Quarter: 2024Q4

REPORT INFORMATION
  Report Type: Spontaneous
  Country: US (occurrence: US)
  Receive Date: 20241218
  Receipt Date: 20241218
  Transmission Date: 20250115
  Serious: No
  Sender: Harrow Health
  Company Number: US-IMP-2024001139

PATIENT
  Age: 76 Year
  Sex: Female

DRUGS (3)
  1. VEVYE [Suspect]
     Active Substance: CYCLOSPORINE
     Indication: Dry eye
     Dosage: ONE DROP EACH EYE TWICE ONE DURING THE DAY AND ONE AT?NIGHT
     Route: 047
     Dates: start: 202409, end: 20241209
  2. OTC Systane [Concomitant]
     Indication: Product used for unknown indication
     Dosage: DURING THE DAY
     Route: 065
  3. Systane night drops [Concomitant]
     Indication: Product used for unknown indication
     Dosage: DURING THE NIGHT
     Route: 065

REACTIONS (7)
  - Eye pain [Unknown]
  - Instillation site hypersensitivity [Unknown]
  - Instillation site irritation [Unknown]
  - Visual impairment [Unknown]
  - Eye discharge [Unknown]
  - Drug ineffective [Unknown]
  - Product quality issue [Unknown]

NARRATIVE: CASE EVENT DATE: 20240101
